FAERS Safety Report 5939275-6 (Version None)
Quarter: 2008Q4

REPORT INFORMATION
  Report Type: 
  Country: None (occurrence: None)
  Receive Date: 20081103
  Receipt Date: 20081022
  Transmission Date: 20090506
  Serious: Yes (Life-Threatening, Hospitalization, Disabling, Other)
  Sender: FDA-Public Use
  Company Number: SA-PFIZER INC-2008089207

PATIENT
  Age: 2 Year
  Sex: Female

DRUGS (1)
  1. ZITHROMAX [Suspect]
     Route: 042
     Dates: start: 20081011, end: 20081011

REACTIONS (7)
  - ABASIA [None]
  - CARDIAC ARREST [None]
  - COMA [None]
  - DRUG ADMINISTRATION ERROR [None]
  - MUSCULAR WEAKNESS [None]
  - RESPIRATORY ARREST [None]
  - VISION BLURRED [None]
